FAERS Safety Report 15073555 (Version 1)
Quarter: 2018Q2

REPORT INFORMATION
  Report Type: Report from Study
  Country: US (occurrence: US)
  Receive Date: 20180627
  Receipt Date: 20180627
  Transmission Date: 20180711
  Serious: Yes (Other)
  Sender: FDA-Public Use
  Company Number: PHEH2018US024437

PATIENT

DRUGS (1)
  1. ILARIS [Suspect]
     Active Substance: CANAKINUMAB
     Indication: FAMILIAL MEDITERRANEAN FEVER
     Dosage: 150 MG/KG, Q4W
     Route: 058

REACTIONS (6)
  - Hemiparesis [Unknown]
  - Breath sounds abnormal [Unknown]
  - Decreased appetite [Unknown]
  - Respiratory tract congestion [Unknown]
  - Nausea [Unknown]
  - Pain [Unknown]
